FAERS Safety Report 6885334-3 (Version None)
Quarter: 2010Q3

REPORT INFORMATION
  Report Type: 
  Country: None (occurrence: None)
  Receive Date: 20100727
  Receipt Date: 20100720
  Transmission Date: 20110219
  Serious: Yes (Hospitalization, Other)
  Sender: FDA-Public Use
  Company Number: OPER20100122

PATIENT
  Age: 60 Year
  Sex: Male

DRUGS (2)
  1. OPANA ER [Suspect]
     Indication: PRODUCT USED FOR UNKNOWN INDICATION
     Dosage: 40 MG, BID, ORAL
     Route: 048
     Dates: start: 20080701, end: 20091001
  2. OXYCONTIN (OXYCONODONE HYDROCHLORIDE) [Concomitant]

REACTIONS (7)
  - CHEST PAIN [None]
  - CONCUSSION [None]
  - DIZZINESS [None]
  - FALL [None]
  - HEAD INJURY [None]
  - ILL-DEFINED DISORDER [None]
  - THROMBOSIS [None]
